FAERS Safety Report 24092847 (Version 1)
Quarter: 2024Q3

REPORT INFORMATION
  Report Type: Spontaneous
  Country: CN (occurrence: CN)
  Receive Date: 20240715
  Receipt Date: 20240715
  Transmission Date: 20241017
  Serious: Yes (Other)
  Sender: BAXTER
  Company Number: None

PATIENT
  Age: 48 Year
  Sex: Male
  Weight: 50 kg

DRUGS (3)
  1. CYCLOPHOSPHAMIDE [Suspect]
     Active Substance: CYCLOPHOSPHAMIDE
     Indication: Acute lymphocytic leukaemia
     Dosage: 1.3 G, ONE TIME IN ONE DAY, DILUTED WITH 250 ML OF SODIUM CHLORIDE
     Route: 041
     Dates: start: 20240627, end: 20240627
  2. CYCLOPHOSPHAMIDE [Suspect]
     Active Substance: CYCLOPHOSPHAMIDE
     Indication: Chemotherapy
  3. SODIUM CHLORIDE [Suspect]
     Active Substance: SODIUM CHLORIDE
     Indication: Medication dilution
     Dosage: 250 ML, ONE TIME IN ONE DAY, USED TO DILUTE 1.3 G OF CYCLOPHOSPHAMIDE (0.9% INJECTION)
     Route: 041
     Dates: start: 20240627, end: 20240627

REACTIONS (1)
  - Myelosuppression [Recovering/Resolving]

NARRATIVE: CASE EVENT DATE: 20240630
